FAERS Safety Report 12394440 (Version 1)
Quarter: 2016Q2

REPORT INFORMATION
  Report Type: Spontaneous
  Country: US (occurrence: US)
  Receive Date: 20160523
  Receipt Date: 20160523
  Transmission Date: 20160815
  Serious: No
  Sender: FDA-Public Use
  Company Number: US-TARO-2016TAR00214

PATIENT
  Age: 18 Month
  Sex: Female

DRUGS (3)
  1. CETIRIZINE HCL [Suspect]
     Active Substance: CETIRIZINE HYDROCHLORIDE
     Dosage: 4 ML, ONCE
     Route: 048
     Dates: start: 20160302
  2. NASAL SALINE SPRAY [Concomitant]
  3. CETIRIZINE HCL [Suspect]
     Active Substance: CETIRIZINE HYDROCHLORIDE
     Dosage: UNK, 1X/DAY
     Route: 048
     Dates: start: 20160303

REACTIONS (2)
  - Hypersomnia [Recovered/Resolved]
  - Accidental overdose [Recovered/Resolved]

NARRATIVE: CASE EVENT DATE: 20160302
